FAERS Safety Report 6594679-6 (Version None)
Quarter: 2010Q1

REPORT INFORMATION
  Report Type: 
  Country: None (occurrence: None)
  Receive Date: 20100222
  Receipt Date: 20100212
  Transmission Date: 20100710
  Serious: Yes (Hospitalization, Other)
  Sender: FDA-Public Use
  Company Number: US-AMGEN-QUU392715

PATIENT
  Sex: Female

DRUGS (1)
  1. ENBREL [Suspect]
     Indication: RHEUMATOID ARTHRITIS
     Route: 058
     Dates: start: 20020101

REACTIONS (5)
  - ABDOMINAL PAIN UPPER [None]
  - ANAEMIA [None]
  - LARGE INTESTINAL ULCER HAEMORRHAGE [None]
  - RHEUMATOID ARTHRITIS [None]
  - ULCER HAEMORRHAGE [None]
